FAERS Safety Report 5760221-2 (Version None)
Quarter: 2008Q2

REPORT INFORMATION
  Report Type: 
  Country: None (occurrence: None)
  Receive Date: 20080602
  Receipt Date: 20080520
  Transmission Date: 20081010
  Serious: Yes (Other)
  Sender: FDA-Public Use
  Company Number: 2008013325

PATIENT
  Age: 20 Year
  Sex: Female
  Weight: 63.5036 kg

DRUGS (1)
  1. LISTERINE WHITENING PRE-BRUSH RINSE (NO ACTIVE INGREDIENT) [Suspect]
     Indication: DENTAL CARE
     Dosage: 1/2 INCH IN THE CAP 2X IN ONE DAY, ORAL
     Route: 048
     Dates: start: 20080519, end: 20080519

REACTIONS (5)
  - APPLICATION SITE IRRITATION [None]
  - GLOSSODYNIA [None]
  - LIP EXFOLIATION [None]
  - SWOLLEN TONGUE [None]
  - TONGUE DISORDER [None]
